FAERS Safety Report 4349451-4 (Version None)
Quarter: 2004Q2

REPORT INFORMATION
  Report Type: 
  Country: None (occurrence: None)
  Receive Date: 20040426
  Receipt Date: 20040413
  Transmission Date: 20050107
  Serious: Yes (Hospitalization)
  Sender: FDA-Public Use
  Company Number: NSADSS2002014851

PATIENT
  Age: 57 Year
  Sex: Female

DRUGS (3)
  1. REMICADE [Suspect]
     Indication: RHEUMATOID ARTHRITIS
     Dosage: 200 MG, 1 IN 1 AS NECESSARY, INTRAVENOUS DRIP
     Route: 041
     Dates: start: 20020124, end: 20020124
  2. DELTACORTENE (PREDNISONE) TABLETS [Concomitant]
  3. CELECOXIB (CELECOXIB) TABLETS [Concomitant]

REACTIONS (5)
  - COUGH [None]
  - ERYTHEMA [None]
  - PYREXIA [None]
  - RASH [None]
  - VERTIGO [None]
